FAERS Safety Report 17355537 (Version 1)
Quarter: 2020Q1

REPORT INFORMATION
  Report Type: Spontaneous
  Country: US (occurrence: US)
  Receive Date: 20200116
  Receipt Date: 20200116
  Transmission Date: 20200409
  Serious: Yes (Other)
  Sender: FDA-Public Use
  Company Number: None

PATIENT
  Age: 46 Year
  Sex: Female
  Weight: 70.76 kg

DRUGS (2)
  1. VENLAFAXINE HCL ER CAPS 75MG [Suspect]
     Active Substance: VENLAFAXINE HYDROCHLORIDE
     Indication: MAJOR DEPRESSION
     Route: 048
     Dates: start: 20190621, end: 20190715
  2. VENALAFAXINE HCL ER CAP 75MG [Suspect]
     Active Substance: VENLAFAXINE HYDROCHLORIDE
     Indication: MAJOR DEPRESSION
     Route: 048
     Dates: start: 20191231

REACTIONS (2)
  - Dizziness [None]
  - Confusional state [None]

NARRATIVE: CASE EVENT DATE: 20200102
